FAERS Safety Report 11762446 (Version 1)
Quarter: 2015Q4

REPORT INFORMATION
  Report Type: Spontaneous
  Country: US (occurrence: US)
  Receive Date: 20151120
  Receipt Date: 20151120
  Transmission Date: 20160304
  Serious: Yes (Hospitalization)
  Sender: FDA-Public Use
  Company Number: US-ELI_LILLY_AND_COMPANY-US201301009065

PATIENT
  Age: 82 Year
  Sex: Female

DRUGS (10)
  1. SYNTHROID [Concomitant]
     Active Substance: LEVOTHYROXINE SODIUM
     Dosage: 12 MG, QD
  2. LASIX [Concomitant]
     Active Substance: FUROSEMIDE
     Dosage: UNK, QD
  3. BABY ASPIRIN [Concomitant]
     Active Substance: ASPIRIN
     Dosage: UNK, QD
  4. PERCOCET [Concomitant]
     Active Substance: ACETAMINOPHEN\OXYCODONE HYDROCHLORIDE
     Dosage: UNK, PRN
  5. FORTEO [Suspect]
     Active Substance: TERIPARATIDE
     Indication: OSTEOPOROSIS
     Dosage: 20 UG, QD
     Dates: start: 201207
  6. DEXALIN [Concomitant]
     Dosage: 60 MG, QD
  7. FORTEO [Suspect]
     Active Substance: TERIPARATIDE
     Dosage: 20 UG, QD
     Dates: start: 201207
  8. PREDNISONE. [Concomitant]
     Active Substance: PREDNISONE
     Dosage: UNK, QD
  9. AMIODARONE [Concomitant]
     Active Substance: AMIODARONE
     Dosage: 200 MG, QD
  10. OXYCONTIN [Concomitant]
     Active Substance: OXYCODONE HYDROCHLORIDE
     Dosage: 10 MG, BID

REACTIONS (4)
  - Clumsiness [Unknown]
  - Gait disturbance [Unknown]
  - Pneumonia [Recovering/Resolving]
  - Fall [Unknown]

NARRATIVE: CASE EVENT DATE: 201210
